FAERS Safety Report 10935771 (Version 2)
Quarter: 2019Q4

REPORT INFORMATION
  Report Type: Spontaneous
  Country: US (occurrence: US)
  Receive Date: 20150320
  Receipt Date: 20191022
  Transmission Date: 20200122
  Serious: Yes (Other)
  Sender: FDA-Public Use
  Company Number: US-PFIZER INC-2015097302

PATIENT
  Age: 62 Year
  Sex: Male

DRUGS (2)
  1. CIALIS [Suspect]
     Active Substance: TADALAFIL
     Indication: ERECTILE DYSFUNCTION
     Dosage: 20 MG, 2X/WEEK
     Dates: start: 20120927, end: 20150126
  2. VIAGRA [Suspect]
     Active Substance: SILDENAFIL CITRATE
     Indication: ERECTILE DYSFUNCTION
     Dosage: 100 MG, 2X/WEEK
     Route: 048
     Dates: start: 20080529, end: 20121214

REACTIONS (2)
  - Skin cancer metastatic [Unknown]
  - Malignant melanoma stage IV [Unknown]

NARRATIVE: CASE EVENT DATE: 201309
